FAERS Safety Report 9757916 (Version 1)
Quarter: 2013Q4

REPORT INFORMATION
  Report Type: Spontaneous
  Country: FR (occurrence: FR)
  Receive Date: 20131216
  Receipt Date: 20131216
  Transmission Date: 20140711
  Serious: Yes (Hospitalization)
  Sender: FDA-Public Use
  Company Number: FR-009507513-1312FRA004929

PATIENT
  Age: 75 Year
  Sex: Male
  Weight: 70 kg

DRUGS (6)
  1. VICTRELIS [Suspect]
     Indication: HEPATITIS C
     Dosage: 2400 MG, QD
     Route: 048
     Dates: start: 20110628
  2. INTERFERON ALFA [Suspect]
     Indication: HEPATITIS C
     Dosage: 100 MICROGRAM, QW
     Route: 065
     Dates: start: 20110531
  3. RIBAVIRIN [Suspect]
     Indication: HEPATITIS C
     Dosage: 1000 MG, QD
     Route: 048
     Dates: start: 20110531
  4. LEXOMIL [Suspect]
     Indication: DEPRESSION
     Dosage: 6 MG, QD
     Route: 065
     Dates: start: 20110726, end: 20110920
  5. STABLON [Suspect]
     Indication: DEPRESSION
     Dosage: 12.5 MG, QD
     Route: 065
     Dates: start: 20110726, end: 20110920
  6. NEORECORMON [Suspect]
     Indication: ANAEMIA
     Dosage: 30000 IU, QW
     Route: 065
     Dates: start: 20110726

REACTIONS (1)
  - Mental retardation [Recovered/Resolved]
